FAERS Safety Report 18206019 (Version 1)
Quarter: 2020Q3

REPORT INFORMATION
  Report Type: Spontaneous
  Country: JP (occurrence: JP)
  Receive Date: 20200828
  Receipt Date: 20200828
  Transmission Date: 20201103
  Serious: Yes (Hospitalization)
  Sender: FDA-Public Use
  Company Number: JP-009507513-2008JPN013727

PATIENT
  Age: 62 Year
  Sex: Female

DRUGS (9)
  1. REFLEX [Suspect]
     Active Substance: MIRTAZAPINE
     Indication: INSOMNIA
     Dosage: 15 MILLIGRAM
     Route: 048
     Dates: start: 20200610, end: 20200610
  2. REFLEX [Suspect]
     Active Substance: MIRTAZAPINE
     Indication: DEPRESSION
     Dosage: 15 MILLIGRAM
     Route: 048
     Dates: start: 20200605, end: 20200609
  3. KETOPROFEN. [Concomitant]
     Active Substance: KETOPROFEN
     Dosage: 40 MILLIGRAM, FREQUENCY UNKNOWN
  4. CLOPERASTINE HYDROCHLORIDE [Concomitant]
     Active Substance: CLOPERASTINE HYDROCHLORIDE
     Dosage: 10 MILLIGRAM, FREQUENCY UNKNOWN
  5. TEPRENONE [Concomitant]
     Active Substance: TEPRENONE
     Dosage: 50 MILLIGRAM, FREQUENCY UNKNOWN
  6. LOXOPROFEN SODIUM [Concomitant]
     Active Substance: LOXOPROFEN SODIUM
     Dosage: 50 MILLIGRAM, FREQUENCY UNKNOWN
  7. MAGNESIUM OXIDE. [Concomitant]
     Active Substance: MAGNESIUM OXIDE
     Dosage: 330 MILLIGRAM, FREQUENCY UNKNOWN
  8. ACETAMINOPHEN (+) CAFFEINE (+) CHLORPHENIRAMINE MALEATE (+) SALICYLAMI [Concomitant]
     Dosage: UNK
  9. METOCLOPRAMIDE. [Concomitant]
     Active Substance: METOCLOPRAMIDE
     Dosage: 5 MILLIGRAM, FREQUENCY UNKNOWN

REACTIONS (1)
  - Drug eruption [Recovered/Resolved]

NARRATIVE: CASE EVENT DATE: 20200610
